FAERS Safety Report 5932573-1 (Version None)
Quarter: 2008Q4

REPORT INFORMATION
  Report Type: 
  Country: None (occurrence: None)
  Receive Date: 20081023
  Receipt Date: 20060529
  Transmission Date: 20090506
  Serious: Yes (Hospitalization, Other)
  Sender: FDA-Public Use
  Company Number: 2006AL002098

PATIENT
  Age: 79 Year
  Sex: Female

DRUGS (9)
  1. CITALOPRAM HYDROBROMIDE [Suspect]
     Indication: HYPERTENSION
     Dosage: 20 MG;QD;PO
     Route: 048
     Dates: end: 20060424
  2. DIPYRIDAMOLE [Suspect]
     Dosage: 200 MG;QD;PO
     Route: 048
  3. BENDROFLUMETHIAZIDE ({NULL}) [Suspect]
     Indication: HYPERTENSION
     Dosage: 2.5 MG;QD;PO
     Route: 048
     Dates: end: 20060424
  4. AMLODIPINE [Concomitant]
  5. LISINOPRIL [Concomitant]
  6. SIMVASTATIN [Concomitant]
  7. SERETIDE [Concomitant]
  8. TAMOXIFEN [Concomitant]
  9. ALBUTEROL SULFATE [Concomitant]

REACTIONS (2)
  - BLOOD SODIUM DECREASED [None]
  - DEHYDRATION [None]
